FAERS Safety Report 9398916 (Version 1)
Quarter: 2013Q3

REPORT INFORMATION
  Report Type: Spontaneous
  Country: JP (occurrence: JP)
  Receive Date: 20130712
  Receipt Date: 20130712
  Transmission Date: 20140515
  Serious: Yes (Other)
  Sender: FDA-Public Use
  Company Number: JP-B.I. PHARMACEUTICALS,INC./RIDGEFIELD-2013-BI-20285NB

PATIENT
  Sex: 0

DRUGS (2)
  1. MICARDIS [Suspect]
     Indication: BLOOD PRESSURE
     Route: 065
  2. AMLODIN [Concomitant]
     Indication: BLOOD PRESSURE
     Route: 065

REACTIONS (1)
  - Breast cancer [Unknown]
